FAERS Safety Report 23511003 (Version 2)
Quarter: 2024Q1

REPORT INFORMATION
  Report Type: Report from Study
  Country: US (occurrence: US)
  Receive Date: 20240212
  Receipt Date: 20240321
  Transmission Date: 20240410
  Serious: Yes (Death, Other)
  Sender: FDA-Public Use
  Company Number: US-TAKEDA-2024TUS012591

PATIENT
  Age: 40 Year
  Sex: Female
  Weight: 60.59 kg

DRUGS (1)
  1. FRUQUINTINIB [Suspect]
     Active Substance: FRUQUINTINIB
     Indication: Colon cancer
     Dosage: 5 MILLIGRAM
     Route: 048
     Dates: start: 20240131

REACTIONS (2)
  - Death [Fatal]
  - Fatigue [Unknown]

NARRATIVE: CASE EVENT DATE: 20240301
